FAERS Safety Report 8207025-9 (Version None)
Quarter: 2012Q1

REPORT INFORMATION
  Report Type: 
  Country: None (occurrence: None)
  Receive Date: 20120314
  Receipt Date: 20120306
  Transmission Date: 20120608
  Serious: Yes (Hospitalization)
  Sender: FDA-Public Use
  Company Number: US-US-EMD SERONO, INC.-7016682

PATIENT
  Sex: Female

DRUGS (4)
  1. REBIF [Suspect]
     Indication: MULTIPLE SCLEROSIS
     Route: 058
     Dates: start: 20020906
  2. OXYBUTININ ER [Concomitant]
     Indication: NEUROGENIC BLADDER
     Dates: end: 20100101
  3. LISINOPRIL [Concomitant]
     Indication: HYPERTENSION
  4. DOXYCYCLINE [Concomitant]
     Indication: ROSACEA

REACTIONS (3)
  - MULTIPLE SCLEROSIS RELAPSE [None]
  - URINARY TRACT INFECTION [None]
  - DECUBITUS ULCER [None]
